FAERS Safety Report 21083062 (Version 1)
Quarter: 2022Q3

REPORT INFORMATION
  Report Type: Report from Study
  Country: US (occurrence: US)
  Receive Date: 20220714
  Receipt Date: 20220714
  Transmission Date: 20221027
  Serious: No
  Sender: FDA-Public Use
  Company Number: US-NOVARTISTESTPH-NVSC2022US159649

PATIENT
  Sex: Male

DRUGS (1)
  1. ENTRESTO [Suspect]
     Active Substance: SACUBITRIL\VALSARTAN
     Indication: Chronic left ventricular failure
     Dosage: 1.5 DOSAGE FORM, BID (1/2 TABLET BY MOUTH QAM AND 1 TABLET BY MOUTH QPM)
     Route: 048

REACTIONS (1)
  - Wrong technique in product usage process [Unknown]
